FAERS Safety Report 13277167 (Version 3)
Quarter: 2017Q1

REPORT INFORMATION
  Report Type: Report from Study
  Country: US (occurrence: US)
  Receive Date: 20170228
  Receipt Date: 20170328
  Transmission Date: 20170428
  Serious: Yes (Hospitalization, Other)
  Sender: FDA-Public Use
  Company Number: US-GILEAD-2016-0248265

PATIENT
  Age: 65 Year
  Sex: Male

DRUGS (2)
  1. IDELALISIB [Suspect]
     Active Substance: IDELALISIB
     Indication: CHRONIC LYMPHOCYTIC LEUKAEMIA
     Dosage: 150 MG, QD
     Route: 048
     Dates: start: 20160726
  2. IDELALISIB [Suspect]
     Active Substance: IDELALISIB
     Indication: LYMPHOMA
     Dosage: 150 MG BID
     Route: 048
     Dates: start: 20170207

REACTIONS (11)
  - Off label use [Not Recovered/Not Resolved]
  - Pyrexia [Not Recovered/Not Resolved]
  - Chills [Not Recovered/Not Resolved]
  - Neoplasm progression [Unknown]
  - Asthenia [Unknown]
  - Urinary tract infection [Unknown]
  - Lymphadenopathy [Unknown]
  - Immune system disorder [Unknown]
  - Drug ineffective [Unknown]
  - Dehydration [Unknown]
  - Viral infection [Unknown]
